FAERS Safety Report 19761429 (Version 1)
Quarter: 2021Q3

REPORT INFORMATION
  Report Type: Spontaneous
  Country: US (occurrence: US)
  Receive Date: 20210830
  Receipt Date: 20210830
  Transmission Date: 20211014
  Serious: No
  Sender: FDA-Public Use
  Company Number: US-TEVA-2021-US-1945877

PATIENT
  Sex: Female

DRUGS (1)
  1. COPAXONE [Suspect]
     Active Substance: GLATIRAMER ACETATE
     Indication: RELAPSING-REMITTING MULTIPLE SCLEROSIS
     Dosage: FORM STRENGTH AND DOSE: UNKNOWN
     Route: 065

REACTIONS (5)
  - Urticaria [Unknown]
  - Drug hypersensitivity [Unknown]
  - Swelling [Unknown]
  - Rash [Unknown]
  - Pruritus [Unknown]
